FAERS Safety Report 9800001 (Version 1)
Quarter: 2014Q1

REPORT INFORMATION
  Report Type: Spontaneous
  Country: US (occurrence: US)
  Receive Date: 20140106
  Receipt Date: 20140106
  Transmission Date: 20141002
  Serious: No
  Sender: FDA-Public Use
  Company Number: US-GILEAD-2010-0030852

PATIENT
  Age: 48 Year
  Sex: Female

DRUGS (13)
  1. LETAIRIS [Suspect]
     Indication: PULMONARY ARTERIAL HYPERTENSION
     Dates: start: 20100609
  2. CEFTIN [Concomitant]
  3. ASMANEX TWISTHALER [Concomitant]
  4. DIAMOX [Concomitant]
  5. COMPAZINE [Concomitant]
  6. LASIX [Concomitant]
  7. VERAPAMIL [Concomitant]
  8. ACCOLATE [Concomitant]
  9. ALBUTEROL [Concomitant]
  10. ACIPHEX [Concomitant]
  11. IRON [Concomitant]
  12. POTASSIUM CHLORIDE [Concomitant]
  13. REVATIO [Concomitant]

REACTIONS (1)
  - Anaemia [Unknown]
